FAERS Safety Report 4601405-6 (Version None)
Quarter: 2005Q1

REPORT INFORMATION
  Report Type: 
  Country: None (occurrence: None)
  Receive Date: 20050202
  Receipt Date: 20040817
  Transmission Date: 20050727
  Serious: Yes (Hospitalization)
  Sender: FDA-Public Use
  Company Number: 8006792

PATIENT
  Sex: Female

DRUGS (3)
  1. KEPPRA [Suspect]
     Indication: MIGRAINE
     Dosage: 500 MG 2/D PO
     Route: 048
  2. TYLENOL W/ CODEINE NO. 3 [Concomitant]
  3. PROZAC [Concomitant]

REACTIONS (3)
  - AGITATION [None]
  - ANXIETY [None]
  - HOSTILITY [None]
